FAERS Safety Report 24028511 (Version 1)
Quarter: 2024Q2

REPORT INFORMATION
  Report Type: Spontaneous
  Country: IT (occurrence: IT)
  Receive Date: 20240628
  Receipt Date: 20240628
  Transmission Date: 20240716
  Serious: Yes (Other)
  Sender: FDA-Public Use
  Company Number: IT-SUN PHARMACEUTICAL INDUSTRIES LTD-2024RR-453640

PATIENT
  Age: 59 Year
  Sex: Female
  Weight: 60 kg

DRUGS (10)
  1. GEMCITABINE [Suspect]
     Active Substance: GEMCITABINE
     Indication: Chemotherapy
     Dosage: DAYS 1, 8 AND 15 OF A 28-D CYCLE
     Route: 040
     Dates: start: 2020
  2. GEMCITABINE [Suspect]
     Active Substance: GEMCITABINE
     Indication: Pancreatic carcinoma
  3. OXALIPLATIN [Suspect]
     Active Substance: OXALIPLATIN
     Indication: Chemotherapy
     Dosage: 85 MILLIGRAM/SQ. METER
     Route: 040
     Dates: start: 202102
  4. IRINOTECAN [Suspect]
     Active Substance: IRINOTECAN
     Indication: Chemotherapy
     Dosage: 150 MILLIGRAM/SQ. METER
     Dates: start: 202102
  5. ENOXAPARIN SODIUM [Suspect]
     Active Substance: ENOXAPARIN SODIUM
     Indication: Anticoagulant therapy
     Dosage: 100 IU ANTI-XA 1 MG/KG TWICE DAILY
     Route: 040
  6. HEPARIN [Suspect]
     Active Substance: HEPARIN SODIUM
     Indication: Embolism
     Dosage: UNK
     Route: 065
  7. PACLITAXEL [Suspect]
     Active Substance: PACLITAXEL
     Indication: Chemotherapy
     Dosage: DAYS 1, 8 AND 15 OF A 28-D CYCLE
     Route: 040
     Dates: start: 2020
  8. PACLITAXEL [Suspect]
     Active Substance: PACLITAXEL
     Indication: Pancreatic carcinoma
  9. FLUOROURACIL [Suspect]
     Active Substance: FLUOROURACIL
     Indication: Chemotherapy
     Dosage: 2400 MILLIGRAM/SQ. METER, CONTINUOUS INFUSION FOR 44 H
     Route: 040
     Dates: start: 202102
  10. FOLIC ACID [Suspect]
     Active Substance: FOLIC ACID
     Indication: Chemotherapy
     Dosage: 200 MILLIGRAM/SQ. METER
     Route: 040
     Dates: start: 202102

REACTIONS (3)
  - Disease progression [Unknown]
  - Treatment noncompliance [Unknown]
  - Drug hypersensitivity [Unknown]
